FAERS Safety Report 7204951-4 (Version None)
Quarter: 2010Q4

REPORT INFORMATION
  Report Type: 
  Country: None (occurrence: None)
  Receive Date: 20101230
  Receipt Date: 20101228
  Transmission Date: 20110411
  Serious: Yes (Hospitalization)
  Sender: FDA-Public Use
  Company Number: US-B.I. PHARMACEUTICALS,INC./RIDGEFIELD-2010-BP-15288BP

PATIENT
  Age: 85 Year
  Sex: Male

DRUGS (1)
  1. PRADAXA [Suspect]
     Dosage: 300 MG

REACTIONS (5)
  - CREATININE RENAL CLEARANCE DECREASED [None]
  - MOUTH HAEMORRHAGE [None]
  - PENILE HAEMORRHAGE [None]
  - POST PROCEDURAL HAEMORRHAGE [None]
  - RENAL FAILURE CHRONIC [None]
